FAERS Safety Report 14820363 (Version 2)
Quarter: 2018Q2

REPORT INFORMATION
  Report Type: Report from Study
  Country: None (occurrence: US)
  Receive Date: 20180427
  Receipt Date: 20180503
  Transmission Date: 20180711
  Serious: Yes (Death, Life-Threatening, Hospitalization, Other)
  Sender: FDA-Public Use
  Company Number: US-ABBVIE-18P-163-2312231-00

PATIENT
  Age: 77 Year
  Sex: Male
  Weight: 95.34 kg

DRUGS (21)
  1. TAMSULOSIN(FLOMAX) [Concomitant]
     Indication: BENIGN PROSTATIC HYPERPLASIA
     Route: 048
     Dates: start: 2005
  2. SERTRALINE(ZOLOFT) [Concomitant]
     Indication: DEPRESSION
     Route: 048
     Dates: start: 2010
  3. DEXTROMETHORPHAN [Concomitant]
     Active Substance: DEXTROMETHORPHAN
     Indication: ABDOMINAL WALL HAEMATOMA
     Route: 048
     Dates: start: 20160529
  4. METFORMIN(GLUCOPHAGE) [Concomitant]
     Indication: DIABETES MELLITUS
     Route: 048
     Dates: start: 2001
  5. ACETAMINOPHEN. [Concomitant]
     Active Substance: ACETAMINOPHEN
     Indication: PAIN MANAGEMENT
     Route: 048
     Dates: start: 20121220
  6. MULTIVITAMINS [Concomitant]
     Active Substance: VITAMINS
     Indication: VITAMIN SUPPLEMENTATION
     Route: 048
     Dates: start: 20121220
  7. METOPROLOL(LOPRESSOR) [Concomitant]
     Indication: HYPERTENSION
     Route: 048
     Dates: start: 2004
  8. LISINOPRIL. [Concomitant]
     Active Substance: LISINOPRIL
     Indication: HYPERLIPIDAEMIA
     Route: 048
     Dates: start: 2005
  9. HUMIRA [Suspect]
     Active Substance: ADALIMUMAB
     Indication: COLITIS ULCERATIVE
     Route: 058
     Dates: start: 20141208
  10. HUMIRA [Suspect]
     Active Substance: ADALIMUMAB
     Route: 058
     Dates: start: 20150217, end: 20161219
  11. PROCHLOROPERAZINE [Concomitant]
     Active Substance: PROCHLORPERAZINE
     Indication: NAUSEA
     Route: 048
     Dates: start: 20160525
  12. BUSPIRONE(BUSPAR) [Concomitant]
     Indication: DEPRESSION
     Route: 048
     Dates: start: 2005
  13. SOLIFENACIN(VESICARE) [Concomitant]
     Indication: BENIGN PROSTATIC HYPERPLASIA
     Route: 048
     Dates: start: 2005
  14. METOPROLOL(LOPRESSOR) [Concomitant]
     Route: 048
     Dates: start: 20150510
  15. ACETAMINOPHEN. [Concomitant]
     Active Substance: ACETAMINOPHEN
     Indication: POSTOPERATIVE ANALGESIA
  16. TORSEMIDE. [Concomitant]
     Active Substance: TORSEMIDE
     Indication: ACUTE KIDNEY INJURY
     Route: 048
     Dates: start: 20160529
  17. ENTYVIO [Concomitant]
     Active Substance: VEDOLIZUMAB
     Indication: COLITIS ULCERATIVE
     Route: 042
     Dates: start: 20161219
  18. GEMFIBROZIL(LOPID) [Concomitant]
     Indication: HYPERLIPIDAEMIA
     Route: 048
     Dates: start: 2005
  19. PANTOPRAZOLE(PROTONIX) [Concomitant]
     Indication: GASTROOESOPHAGEAL REFLUX DISEASE
     Route: 048
     Dates: start: 2007
  20. GABAPENTIN. [Concomitant]
     Active Substance: GABAPENTIN
     Indication: ABDOMINAL PAIN UPPER
     Route: 048
     Dates: start: 20160529
  21. PLAVIX [Concomitant]
     Active Substance: CLOPIDOGREL BISULFATE
     Indication: ATRIAL FIBRILLATION
     Route: 048
     Dates: start: 20161216

REACTIONS (4)
  - Septic shock [Fatal]
  - Respiratory failure [Fatal]
  - Abdominal pain upper [Recovered/Resolved]
  - Staphylococcal infection [Fatal]

NARRATIVE: CASE EVENT DATE: 20180404
